FAERS Safety Report 23066940 (Version 1)
Quarter: 2023Q4

REPORT INFORMATION
  Report Type: Spontaneous
  Country: US (occurrence: US)
  Receive Date: 20231016
  Receipt Date: 20231016
  Transmission Date: 20240110
  Serious: Yes (Hospitalization, Other)
  Sender: FDA-Public Use
  Company Number: US-PIRAMAL CRITICAL CARE LIMITED-2023-PPL-000450

PATIENT

DRUGS (1)
  1. SEVOFLURANE [Suspect]
     Active Substance: SEVOFLURANE
     Indication: Anaesthesia
     Dosage: UNK

REACTIONS (8)
  - Diffuse alveolar damage [Unknown]
  - Bronchiectasis [Unknown]
  - Pleural effusion [Unknown]
  - Acute lung injury [Unknown]
  - Pain [Unknown]
  - Hyperventilation [Unknown]
  - Dyspnoea [Unknown]
  - Hypoxia [Unknown]
